FAERS Safety Report 7153823-2 (Version None)
Quarter: 2010Q4

REPORT INFORMATION
  Report Type: 
  Country: None (occurrence: None)
  Receive Date: 20101213
  Receipt Date: 20100810
  Transmission Date: 20110411
  Serious: No
  Sender: FDA-Public Use
  Company Number: US-ABBOTT-10P-163-0663556-00

PATIENT
  Sex: Female

DRUGS (2)
  1. MERIDIA [Suspect]
     Indication: WEIGHT CONTROL
     Dates: start: 20100601
  2. LEVOTHYROXINE [Concomitant]
     Indication: HYPOTHYROIDISM

REACTIONS (1)
  - OROPHARYNGEAL DISCOMFORT [None]
